FAERS Safety Report 22181837 (Version 10)
Quarter: 2023Q4

REPORT INFORMATION
  Report Type: Spontaneous
  Country: US (occurrence: US)
  Receive Date: 20230406
  Receipt Date: 20231120
  Transmission Date: 20240109
  Serious: Yes (Other)
  Sender: FDA-Public Use
  Company Number: US-PFIZER INC-PV202300061611

PATIENT
  Age: 86 Year
  Sex: Female
  Weight: 65.77 kg

DRUGS (4)
  1. IBRANCE [Suspect]
     Active Substance: PALBOCICLIB
     Indication: Breast cancer metastatic
     Dosage: EVERY DAY FOR 21 DAYS ON, THEN 7 DAYS OFF; WITH OR WITHOUT FOOD
     Route: 048
     Dates: start: 20221117
  2. IBRANCE [Suspect]
     Active Substance: PALBOCICLIB
     Dosage: EVERY DAY FOR 21 DAYS ON, THEN 7 DAYS OFF; WITH OR WITHOUT FOOD
     Route: 048
  3. IBRANCE [Suspect]
     Active Substance: PALBOCICLIB
     Dosage: 125 MG
     Dates: start: 20230706
  4. IBRANCE [Suspect]
     Active Substance: PALBOCICLIB
     Dosage: 100 MG

REACTIONS (8)
  - Cataract [Unknown]
  - Fatigue [Unknown]
  - Dry skin [Unknown]
  - Lymphadenopathy [Unknown]
  - Peripheral swelling [Unknown]
  - White blood cell count decreased [Unknown]
  - Full blood count decreased [Not Recovered/Not Resolved]
  - Neoplasm progression [Unknown]
